FAERS Safety Report 8578480-X (Version None)
Quarter: 2012Q2

REPORT INFORMATION
  Report Type: 
  Country: None (occurrence: None)
  Receive Date: 20120423
  Receipt Date: 20100315
  Transmission Date: 20120825
  Serious: Yes (Hospitalization)
  Sender: FDA-Public Use
  Company Number: PHHY2010US16321

PATIENT
  Age: 54 Year
  Sex: Male

DRUGS (5)
  1. FOLIC ACID [Concomitant]
  2. COREG [Concomitant]
  3. EXJADE [Suspect]
     Dosage: ORAL
     Route: 048
  4. AMLODIPINE [Concomitant]
  5. OXYCODONE [Concomitant]

REACTIONS (1)
  - SICKLE CELL ANAEMIA WITH CRISIS [None]
